FAERS Safety Report 16083315 (Version 1)
Quarter: 2019Q1

REPORT INFORMATION
  Report Type: Spontaneous
  Country: AT (occurrence: AT)
  Receive Date: 20190318
  Receipt Date: 20190318
  Transmission Date: 20190418
  Serious: Yes (Hospitalization)
  Sender: FDA-Public Use
  Company Number: AT-ACTELION-A-CH2019-187395

PATIENT
  Age: 82 Year
  Sex: Female

DRUGS (2)
  1. STAYVEER [Suspect]
     Active Substance: BOSENTAN
     Dosage: UNK
     Route: 048
  2. STAYVEER [Suspect]
     Active Substance: BOSENTAN
     Indication: PULMONARY ARTERIAL HYPERTENSION
     Dosage: 125 MG, QD
     Route: 048

REACTIONS (2)
  - Mastectomy [Unknown]
  - Breast cancer [Unknown]
